FAERS Safety Report 20119229 (Version 2)
Quarter: 2021Q4

REPORT INFORMATION
  Report Type: Report from Study
  Country: US (occurrence: US)
  Receive Date: 20211126
  Receipt Date: 20211201
  Transmission Date: 20220303
  Serious: Yes (Hospitalization)
  Sender: FDA-Public Use
  Company Number: US-JNJFOC-20211147473

PATIENT
  Age: 24 Year
  Sex: Female
  Weight: 71.278 kg

DRUGS (1)
  1. INFLIXIMAB [Suspect]
     Active Substance: INFLIXIMAB
     Indication: Inflammatory bowel disease
     Route: 042
     Dates: start: 20120827

REACTIONS (1)
  - Infection [Not Recovered/Not Resolved]

NARRATIVE: CASE EVENT DATE: 20211024
